FAERS Safety Report 25535153 (Version 1)
Quarter: 2025Q3

REPORT INFORMATION
  Report Type: Spontaneous
  Country: US (occurrence: None)
  Receive Date: 20250709
  Receipt Date: 20250709
  Transmission Date: 20251021
  Serious: Yes (Hospitalization)
  Sender: FDA-CTU
  Company Number: None

PATIENT
  Sex: Male

DRUGS (11)
  1. ENBREL [Suspect]
     Active Substance: ETANERCEPT
     Indication: Rheumatoid arthritis
     Dosage: FREQUENCY : WEEKLY;?
     Route: 058
     Dates: start: 20171017
  2. ALBUTEROL AER HFA [Concomitant]
  3. ASPIRIN LOW TAB 81 MG EG [Concomitant]
  4. GELEXA TAB 40MG [Concomitant]
  5. ENTRESTO [Concomitant]
     Active Substance: SACUBITRIL\VALSARTAN
  6. FLOMAX [Concomitant]
     Active Substance: TAMSULOSIN HYDROCHLORIDE
  7. FUROSEMIDE [Concomitant]
     Active Substance: FUROSEMIDE
  8. JARDIANCE TAB 25MG [Concomitant]
  9. LIPITOR TAB 80MG [Concomitant]
  10. LISINOPRIL [Concomitant]
     Active Substance: LISINOPRIL
  11. METOPROLTARTAB [Concomitant]

REACTIONS (1)
  - Hospitalisation [None]
